FAERS Safety Report 4376009-3 (Version None)
Quarter: 2004Q2

REPORT INFORMATION
  Report Type: 
  Country: None (occurrence: None)
  Receive Date: 20040607
  Receipt Date: 20040525
  Transmission Date: 20050107
  Serious: Yes (Hospitalization)
  Sender: FDA-Public Use
  Company Number: 235730

PATIENT
  Sex: Male
  Weight: 3.3 kg

DRUGS (10)
  1. ACTRAPID PENFILL HM(GE) 3 ML (INSULIN HUMAN) SOLUTION FOR INJECTION, 1 [Suspect]
     Indication: DIABETES MELLITUS INSULIN-DEPENDENT
     Dosage: 66 IU, QD, INTRAUTERINE
     Route: 015
     Dates: start: 20030606
  2. INSULATARD PENFILL (INSULIN HUMAN) SUSPENSION FOR INJECTION [Concomitant]
  3. BENZYLPENICILLIN (BENZYLPENICILLIN) [Concomitant]
  4. GENTACIDIN (GENTAMICIN SULFATE) [Concomitant]
  5. HEPARIN [Concomitant]
  6. MICONAZOLE [Concomitant]
  7. ERYTHROMYCIN [Concomitant]
  8. CO-DYDRAMOL (PARACETAMOL, DIHYDROCODEINE BITARTRATE) [Concomitant]
  9. SYNTOCINON [Concomitant]
  10. ACTRAPID PENFILL HM(GE) 3 ML (INSULIN HUMAN) SOLUTION FOR INJECTION, 1 [Suspect]
     Indication: DIABETES MELLITUS INSULIN-DEPENDENT
     Dosage: 108 IU, QD, INTRAUTERINE
     Route: 015

REACTIONS (8)
  - CYANOSIS NEONATAL [None]
  - DRUG EXPOSURE DURING PREGNANCY [None]
  - HYPERBILIRUBINAEMIA NEONATAL [None]
  - HYPOGLYCAEMIA NEONATAL [None]
  - INJECTION SITE NECROSIS [None]
  - JAUNDICE [None]
  - NEONATAL APNOEIC ATTACK [None]
  - PREMATURE BABY [None]
